FAERS Safety Report 9735556 (Version 4)
Quarter: 2016Q1

REPORT INFORMATION
  Report Type: Spontaneous
  Country: US (occurrence: US)
  Receive Date: 20131206
  Receipt Date: 20160107
  Transmission Date: 20160526
  Serious: Yes (Hospitalization, Disabling, Other)
  Sender: FDA-Public Use
  Company Number: US-009507513-1312USA001904

PATIENT
  Sex: Female
  Weight: 72.56 kg

DRUGS (5)
  1. FOSAMAX [Suspect]
     Active Substance: ALENDRONATE SODIUM
     Dosage: 10 MG, UNK
     Route: 048
     Dates: start: 19970702, end: 20041019
  2. ALENDRONATE SODIUM. [Suspect]
     Active Substance: ALENDRONATE SODIUM
     Indication: OSTEOPOROSIS
     Dosage: 70 MG, QW
     Route: 048
     Dates: start: 200802, end: 20100908
  3. FOSAMAX [Suspect]
     Active Substance: ALENDRONATE SODIUM
     Dosage: 70 MG, QW
     Route: 048
     Dates: start: 20041019, end: 20101024
  4. FOSAMAX [Suspect]
     Active Substance: ALENDRONATE SODIUM
     Indication: OSTEOPOROSIS
     Dosage: UNK
     Route: 048
     Dates: start: 1995, end: 19970603
  5. FOSAMAX [Suspect]
     Active Substance: ALENDRONATE SODIUM
     Dosage: 5 MG, QD
     Route: 048
     Dates: start: 19970618, end: 19970702

REACTIONS (41)
  - Multiple sclerosis [Unknown]
  - Osteoarthritis [Unknown]
  - Joint contracture [Unknown]
  - Bursitis [Unknown]
  - Gastrooesophageal reflux disease [Unknown]
  - Intramedullary rod insertion [Unknown]
  - Intramedullary rod insertion [Unknown]
  - Bone graft [Unknown]
  - Hip fracture [Not Recovered/Not Resolved]
  - Femur fracture [Not Recovered/Not Resolved]
  - Ligament sprain [Unknown]
  - Carpal tunnel decompression [Unknown]
  - Intraocular lens implant [Unknown]
  - Adverse event [Unknown]
  - Urine leukocyte esterase [Unknown]
  - Diarrhoea [Unknown]
  - Stress fracture [Unknown]
  - Intramedullary rod insertion [Unknown]
  - Femur fracture [Unknown]
  - Cataract operation [Unknown]
  - Cataract [Unknown]
  - Urge incontinence [Unknown]
  - Osteoporosis [Not Recovered/Not Resolved]
  - Adverse event [Unknown]
  - Diabetes mellitus [Unknown]
  - Low turnover osteopathy [Not Recovered/Not Resolved]
  - Joint injury [Unknown]
  - Foot fracture [Unknown]
  - Paraesthesia [Unknown]
  - Drug ineffective [Unknown]
  - Arthroscopy [Unknown]
  - Femur fracture [Unknown]
  - Nasal congestion [Unknown]
  - Knee arthroplasty [Unknown]
  - Abdominal distension [Recovered/Resolved]
  - Knee arthroplasty [Unknown]
  - Femur fracture [Unknown]
  - Femur fracture [Unknown]
  - Limb injury [Unknown]
  - Osteoarthritis [Not Recovered/Not Resolved]
  - Clostridium test positive [Unknown]

NARRATIVE: CASE EVENT DATE: 1996
